FAERS Safety Report 4367060-8 (Version None)
Quarter: 2004Q2

REPORT INFORMATION
  Report Type: 
  Country: None (occurrence: None)
  Receive Date: 20040528
  Receipt Date: 20040524
  Transmission Date: 20050107
  Serious: Yes (Hospitalization)
  Sender: FDA-Public Use
  Company Number: US-JNJFOC-20040506105

PATIENT
  Sex: Female

DRUGS (2)
  1. TOPAMAX [Suspect]
     Indication: SCHIZOPHRENIA
     Route: 049
  2. TOPAMAX [Suspect]
     Indication: BIPOLAR DISORDER
     Route: 049

REACTIONS (4)
  - ABNORMAL BEHAVIOUR [None]
  - ADVERSE EVENT [None]
  - DRUG INEFFECTIVE [None]
  - UNEXPECTED THERAPEUTIC DRUG EFFECT [None]
